FAERS Safety Report 7753558-9 (Version None)
Quarter: 2011Q3

REPORT INFORMATION
  Report Type: 
  Country: None (occurrence: None)
  Receive Date: 20110915
  Receipt Date: 20110908
  Transmission Date: 20111222
  Serious: Yes (Hospitalization)
  Sender: FDA-Public Use
  Company Number: US-GLAXOSMITHKLINE-A0759017A

PATIENT
  Age: 75 Year
  Sex: Male
  Weight: 86.4 kg

DRUGS (4)
  1. REGULAR INSULIN [Concomitant]
     Dates: start: 19900101
  2. METFORMIN HYDROCHLORIDE [Concomitant]
     Dates: start: 20010101
  3. AVANDIA [Suspect]
     Indication: TYPE 2 DIABETES MELLITUS
     Dosage: 8MG TWICE PER DAY
     Route: 065
     Dates: start: 20050201, end: 20070201
  4. GLUCOTROL [Concomitant]
     Dates: start: 20061127, end: 20061201

REACTIONS (3)
  - SICK SINUS SYNDROME [None]
  - SYNCOPE [None]
  - MYOCARDIAL INFARCTION [None]
